FAERS Safety Report 4705996-6 (Version None)
Quarter: 2005Q2

REPORT INFORMATION
  Report Type: 
  Country: None (occurrence: None)
  Receive Date: 20050629
  Receipt Date: 20050527
  Transmission Date: 20051028
  Serious: Yes (Hospitalization)
  Sender: FDA-Public Use
  Company Number: 05P-163-0301835-00

PATIENT
  Age: 65 Year
  Sex: Male

DRUGS (4)
  1. HUMIRA [Suspect]
     Indication: POLYARTHRITIS
     Dosage: 40 MG, 1 IN 2 WK, SUBCUTANEOUS
     Route: 058
     Dates: start: 20030509
  2. CANDESARTAN CILEXETIL [Concomitant]
  3. CRESTOR [Concomitant]
  4. NAPROXEN [Concomitant]

REACTIONS (2)
  - PROSTATE CANCER [None]
  - TUBERCULOSIS [None]
